FAERS Safety Report 16131753 (Version 6)
Quarter: 2020Q3

REPORT INFORMATION
  Report Type: Spontaneous
  Country: US (occurrence: US)
  Receive Date: 20190329
  Receipt Date: 20200723
  Transmission Date: 20201102
  Serious: No
  Sender: FDA-Public Use
  Company Number: US-ELI_LILLY_AND_COMPANY-US201903011341

PATIENT
  Age: 61 Year
  Sex: Female

DRUGS (1)
  1. TRULICITY [Suspect]
     Active Substance: DULAGLUTIDE
     Indication: PRODUCT USED FOR UNKNOWN INDICATION
     Dosage: 1.5 MG, UNKNOWN
     Route: 065
     Dates: start: 20181104, end: 20190223

REACTIONS (11)
  - Muscle spasms [Recovering/Resolving]
  - Back pain [Recovered/Resolved]
  - Eructation [Recovered/Resolved]
  - Amnesia [Unknown]
  - Dehydration [Recovered/Resolved]
  - Vomiting projectile [Recovered/Resolved]
  - Diarrhoea [Recovered/Resolved]
  - Nausea [Recovered/Resolved]
  - Alopecia [Recovering/Resolving]
  - Upper respiratory tract infection [Recovered/Resolved]
  - Gastrointestinal disorder [Recovered/Resolved]

NARRATIVE: CASE EVENT DATE: 201812
